FAERS Safety Report 21746773 (Version 1)
Quarter: 2022Q4

REPORT INFORMATION
  Report Type: Spontaneous
  Country: IN (occurrence: IN)
  Receive Date: 20221219
  Receipt Date: 20221219
  Transmission Date: 20230112
  Serious: Yes (Other)
  Sender: FDA-Public Use
  Company Number: IN-LUPIN PHARMACEUTICALS INC.-2022-14461

PATIENT
  Age: 5 Year
  Sex: Male

DRUGS (8)
  1. RIFAMPIN [Suspect]
     Active Substance: RIFAMPIN
     Indication: Extrapulmonary tuberculosis
     Dosage: UNK
     Route: 065
     Dates: start: 2005
  2. PYRAZINAMIDE [Suspect]
     Active Substance: PYRAZINAMIDE
     Indication: Extrapulmonary tuberculosis
     Dosage: 25 MILLIGRAM/KILOGRAM, QD
     Route: 065
     Dates: start: 2005
  3. ETHAMBUTOL [Suspect]
     Active Substance: ETHAMBUTOL HYDROCHLORIDE
     Indication: Extrapulmonary tuberculosis
     Dosage: 15 MILLIGRAM/KILOGRAM, QD
     Route: 065
     Dates: start: 2005
  4. ETHIONAMIDE [Suspect]
     Active Substance: ETHIONAMIDE
     Indication: Extrapulmonary tuberculosis
     Dosage: 15 MILLIGRAM/KILOGRAM, QD
     Route: 065
  5. ISONIAZID [Suspect]
     Active Substance: ISONIAZID
     Indication: Extrapulmonary tuberculosis
     Dosage: UNK
     Route: 065
     Dates: start: 2005
  6. STREPTOMYCIN [Suspect]
     Active Substance: STREPTOMYCIN SULFATE
     Indication: Extrapulmonary tuberculosis
     Dosage: 15 MILLIGRAM/KILOGRAM, QD
     Route: 065
     Dates: start: 2005
  7. OFLOXACIN [Concomitant]
     Active Substance: OFLOXACIN
     Indication: Extrapulmonary tuberculosis
     Dosage: 8 MILLIGRAM/KILOGRAM, QD
     Route: 065
  8. PARA-AMINOSALICYLIC ACID [Concomitant]
     Active Substance: AMINOSALICYLIC ACID
     Indication: Extrapulmonary tuberculosis
     Dosage: UNK
     Route: 065

REACTIONS (2)
  - Multiple-drug resistance [Unknown]
  - Off label use [Unknown]

NARRATIVE: CASE EVENT DATE: 20050101
